FAERS Safety Report 13020374 (Version 2)
Quarter: 2016Q4

REPORT INFORMATION
  Report Type: Spontaneous
  Country: US (occurrence: US)
  Receive Date: 20161212
  Receipt Date: 20161212
  Transmission Date: 20170207
  Serious: No
  Sender: FDA-Public Use
  Company Number: US-ELI_LILLY_AND_COMPANY-US201607011705

PATIENT
  Sex: Female

DRUGS (9)
  1. CYMBALTA [Suspect]
     Active Substance: DULOXETINE HYDROCHLORIDE
     Indication: BACK PAIN
     Dosage: 60 MG, QD
     Route: 048
     Dates: start: 201405
  2. CYMBALTA [Suspect]
     Active Substance: DULOXETINE HYDROCHLORIDE
     Dosage: 20 MG, TWICE DAILY FOR 7 DAYS
     Route: 048
     Dates: start: 20141010, end: 20141016
  3. CYMBALTA [Suspect]
     Active Substance: DULOXETINE HYDROCHLORIDE
     Dosage: UNK UNK, UNKNOWN
     Route: 065
     Dates: end: 20141212
  4. CYMBALTA [Suspect]
     Active Substance: DULOXETINE HYDROCHLORIDE
     Indication: MUSCULOSKELETAL PAIN
     Dosage: 30 MG, QOD
     Route: 048
     Dates: start: 201410
  5. CYMBALTA [Suspect]
     Active Substance: DULOXETINE HYDROCHLORIDE
     Dosage: 20 MG, QD
     Route: 048
     Dates: start: 20141017
  6. CYMBALTA [Suspect]
     Active Substance: DULOXETINE HYDROCHLORIDE
     Dosage: UNK, UNKNOWN
     Route: 065
     Dates: start: 201111
  7. ZOLPIDEM [Concomitant]
     Active Substance: ZOLPIDEM\ZOLPIDEM TARTRATE
     Indication: INSOMNIA
     Dosage: 6.25 MG, AT BEDTIME AS NEEDED
     Route: 048
  8. OXYCODONE AND ACETAMINOPHEN [Concomitant]
     Active Substance: ACETAMINOPHEN\OXYCODONE HYDROCHLORIDE
     Indication: PRODUCT USED FOR UNKNOWN INDICATION
     Dosage: UNK, UNKNOWN
     Route: 048
  9. CYMBALTA [Suspect]
     Active Substance: DULOXETINE HYDROCHLORIDE
     Indication: NEURALGIA
     Dosage: 30 MG, BID
     Route: 048

REACTIONS (12)
  - Depression [Unknown]
  - Fatigue [Unknown]
  - Drug withdrawal syndrome [Unknown]
  - Tinnitus [Unknown]
  - Confusional state [Unknown]
  - Insomnia [Unknown]
  - Anxiety [Unknown]
  - Dizziness [Unknown]
  - Dysphoria [Unknown]
  - Agitation [Unknown]
  - Paraesthesia [Unknown]
  - Irritability [Unknown]
